FAERS Safety Report 8090501-X (Version None)
Quarter: 2012Q1

REPORT INFORMATION
  Report Type: 
  Country: None (occurrence: None)
  Receive Date: 20120129
  Receipt Date: 20111103
  Transmission Date: 20120608
  Serious: No
  Sender: FDA-Public Use
  Company Number: US-ABBOTT-11P-163-0871144-00

PATIENT
  Age: 76 Year
  Sex: Female

DRUGS (10)
  1. FISH OIL [Concomitant]
     Indication: PRODUCT USED FOR UNKNOWN INDICATION
  2. PREDNISONE TAB [Concomitant]
  3. HUMIRA [Suspect]
     Indication: RHEUMATOID ARTHRITIS
     Dates: start: 20110926
  4. TREXATE [Concomitant]
     Indication: ARTHRITIS
     Dosage: 10 MG IN AM AND PM
  5. MULTI-VITAMIN [Concomitant]
     Indication: PRODUCT USED FOR UNKNOWN INDICATION
     Dosage: DAILY
  6. LOSARTAN POTASSIUM [Concomitant]
     Indication: HYPERTENSION
  7. FOLIC ACID [Concomitant]
     Indication: PRODUCT USED FOR UNKNOWN INDICATION
     Dosage: DAILY
  8. PREDNISONE TAB [Concomitant]
     Dates: start: 20111101
  9. CELEBREX [Concomitant]
     Indication: RHEUMATOID ARTHRITIS
  10. PREDNISONE TAB [Concomitant]
     Indication: PRODUCT USED FOR UNKNOWN INDICATION

REACTIONS (5)
  - PAIN [None]
  - FEELING ABNORMAL [None]
  - ARTHRITIS [None]
  - INCORRECT STORAGE OF DRUG [None]
  - GAIT DISTURBANCE [None]
